FAERS Safety Report 23068412 (Version 1)
Quarter: 2023Q4

REPORT INFORMATION
  Report Type: Spontaneous
  Country: HR (occurrence: HR)
  Receive Date: 20231016
  Receipt Date: 20231016
  Transmission Date: 20240109
  Serious: Yes (Death, Hospitalization, Other)
  Sender: FDA-Public Use
  Company Number: None

PATIENT
  Age: 63 Year
  Sex: Male
  Weight: 65 kg

DRUGS (3)
  1. KEYTRUDA [Suspect]
     Active Substance: PEMBROLIZUMAB
     Indication: Lung neoplasm malignant
     Dosage: 200 MILLIGRAM, QD
     Route: 042
     Dates: start: 20230716, end: 20230716
  2. CARBOPLATIN [Concomitant]
     Active Substance: CARBOPLATIN
     Indication: Lung neoplasm malignant
     Dosage: UNK
     Route: 042
     Dates: start: 20230716, end: 20230716
  3. PACLITAXEL [Concomitant]
     Active Substance: PACLITAXEL
     Indication: Lung neoplasm malignant
     Dosage: UNK
     Route: 042
     Dates: start: 20230716, end: 20230716

REACTIONS (5)
  - Immune-mediated hepatitis [Fatal]
  - Hepatic failure [Fatal]
  - Dyspnoea [Fatal]
  - Asthenia [Fatal]
  - Immune-mediated hypophysitis [Recovered/Resolved]

NARRATIVE: CASE EVENT DATE: 20230701
